FAERS Safety Report 19972639 (Version 1)
Quarter: 2021Q4

REPORT INFORMATION
  Report Type: Spontaneous
  Country: US (occurrence: US)
  Receive Date: 20211019
  Receipt Date: 20211019
  Transmission Date: 20220303
  Serious: Yes (Hospitalization)
  Sender: FDA-Public Use
  Company Number: None

PATIENT
  Age: 46 Year
  Sex: Male
  Weight: 127.3 kg

DRUGS (4)
  1. BARICITINIB [Suspect]
     Active Substance: BARICITINIB
     Indication: COVID-19
     Route: 048
     Dates: start: 20211005, end: 20211009
  2. REMDESIVIR [Suspect]
     Active Substance: REMDESIVIR
     Indication: COVID-19
     Route: 042
     Dates: start: 20211002, end: 20211006
  3. Dexamethasone 6 mg daily [Concomitant]
     Dates: start: 20211002, end: 20211003
  4. Methylprednisolone 125 mg every 6 hours [Concomitant]
     Dates: start: 20211003, end: 20211009

REACTIONS (9)
  - Abdominal pain [None]
  - Pneumoperitoneum [None]
  - Intra-abdominal fluid collection [None]
  - Abdominal pain [None]
  - Vomiting [None]
  - Abdominal distension [None]
  - Abdominal tenderness [None]
  - Tachycardia [None]
  - Leukocytosis [None]

NARRATIVE: CASE EVENT DATE: 20211014
